FAERS Safety Report 23028341 (Version 1)
Quarter: 2023Q4

REPORT INFORMATION
  Report Type: Spontaneous
  Country: CA (occurrence: CA)
  Receive Date: 20231004
  Receipt Date: 20231004
  Transmission Date: 20240110
  Serious: Yes (Other)
  Sender: FDA-Public Use
  Company Number: CA-SANDOZ-SDZ2023CA036056

PATIENT
  Age: 36 Year
  Sex: Male

DRUGS (4)
  1. ADALIMUMAB [Suspect]
     Active Substance: ADALIMUMAB
     Indication: Crohn^s disease
     Dosage: 40.0 MG , 1 EVERY 2 WEEKS
     Route: 065
  2. AZATHIOPRINE [Concomitant]
     Active Substance: AZATHIOPRINE
     Indication: Product used for unknown indication
     Dosage: 50.0 MG, 1 EVERY 1 DAY
     Route: 065
  3. BILASTINE [Concomitant]
     Active Substance: BILASTINE
     Indication: Hypersensitivity
     Dosage: 10.0 MG, 1 EVERY 1 DAY
     Route: 065
  4. VENLAFAXINE [Concomitant]
     Active Substance: VENLAFAXINE HYDROCHLORIDE
     Indication: Anxiety
     Dosage: 75.0 MG, 1 EVERY 1 DAY
     Route: 065

REACTIONS (1)
  - COVID-19 [Unknown]
